FAERS Safety Report 7437343-3 (Version None)
Quarter: 2011Q2

REPORT INFORMATION
  Report Type: 
  Country: None (occurrence: None)
  Receive Date: 20110426
  Receipt Date: 20110413
  Transmission Date: 20111010
  Serious: Yes (Other)
  Sender: FDA-Public Use
  Company Number: PHHY2011SG31245

PATIENT
  Sex: Male
  Weight: 105 kg

DRUGS (5)
  1. DIOVAN [Concomitant]
     Dosage: 160 MG, BID
  2. GALVUS MET [Concomitant]
     Dosage: 50/1000 TWICE A DAY
  3. RASILEZ [Suspect]
     Dosage: 300 MG, DAILY
     Route: 065
     Dates: start: 20101101
  4. LIPITOR [Concomitant]
     Dosage: 20 MG, UNK
  5. DIAMICRON MR [Concomitant]
     Dosage: 30 MG, UNK

REACTIONS (1)
  - URINE ALBUMIN/CREATININE RATIO INCREASED [None]
